FAERS Safety Report 4815632-6 (Version None)
Quarter: 2005Q4

REPORT INFORMATION
  Report Type: 
  Country: None (occurrence: None)
  Receive Date: 20051027
  Receipt Date: 20051019
  Transmission Date: 20060501
  Serious: Yes (Death)
  Sender: FDA-Public Use
  Company Number: 2005140877

PATIENT
  Age: 64 Year
  Sex: Male
  Weight: 73.8 kg

DRUGS (18)
  1. HEPARIN SODIUM [Suspect]
     Indication: ILL-DEFINED DISORDER
     Dosage: INTRAVENOUS
     Route: 042
     Dates: start: 20041003, end: 20041009
  2. CISPLATIN [Suspect]
     Indication: GASTRIC CANCER
     Dosage: INTRAVENOUS
     Route: 042
     Dates: start: 20040807, end: 20040907
  3. FLUOROURACIL [Suspect]
     Indication: GASTRIC CANCER
     Dosage: 3500 MG, INTRAVNEOUS
     Route: 042
     Dates: start: 20040709, end: 20040907
  4. LEUCOVORIN CALCIUM [Suspect]
     Indication: GASTRIC CANCER
     Dosage: 900 MG, INTRAVENOUS
     Route: 042
     Dates: start: 20040907, end: 20040907
  5. METOPROLOL TARTRATE [Concomitant]
  6. TORSEMIDE [Concomitant]
  7. PYRIDOXINE (PYRIDOXINE) [Concomitant]
  8. THIAMINE (THIAMINE) [Concomitant]
  9. ACETYLSALICYLIC AICD (ACETYLSALICYLIC ACID) [Concomitant]
  10. SULPIRIDE (SULPIRIDE) [Concomitant]
  11. PANTOPRAZOLE SODIUM [Concomitant]
  12. AMINOMIX (AMINO ACIDS NOS, ELECTROLYTES NOS, GLUCOSE) [Concomitant]
  13. ELECTROLYTE SOLUTIONS (ELECTROLYTE SOLUTIONS) [Concomitant]
  14. TRAMADOL HCL [Concomitant]
  15. MEPERIDINE HYDROCHLORIDE [Concomitant]
  16. MORPHINE [Concomitant]
  17. GRANISETRON  HCL [Concomitant]
  18. DEXAMETHASONE [Concomitant]

REACTIONS (3)
  - BLOOD BILIRUBIN INCREASED [None]
  - HEPATIC FAILURE [None]
  - HEPATOTOXICITY [None]
